FAERS Safety Report 24320267 (Version 2)
Quarter: 2024Q4

REPORT INFORMATION
  Report Type: Spontaneous
  Country: US (occurrence: US)
  Receive Date: 20240914
  Receipt Date: 20241008
  Transmission Date: 20250115
  Serious: No
  Sender: ALEXION PHARMACEUTICALS
  Company Number: US-AstraZeneca-CH-00705586A

PATIENT
  Age: 8 Year

DRUGS (4)
  1. STRENSIQ [Suspect]
     Active Substance: ASFOTASE ALFA
     Indication: Product used for unknown indication
     Route: 065
  2. STRENSIQ [Suspect]
     Active Substance: ASFOTASE ALFA
  3. STRENSIQ [Suspect]
     Active Substance: ASFOTASE ALFA
     Route: 065
  4. STRENSIQ [Suspect]
     Active Substance: ASFOTASE ALFA

REACTIONS (2)
  - Injection site bruising [Recovered/Resolved]
  - Injection site discolouration [Recovered/Resolved]
